FAERS Safety Report 6303176-4 (Version None)
Quarter: 2009Q3

REPORT INFORMATION
  Report Type: 
  Country: None (occurrence: None)
  Receive Date: 20090810
  Receipt Date: 20090501
  Transmission Date: 20100115
  Serious: No
  Sender: FDA-Public Use
  Company Number: A0781642A

PATIENT
  Sex: Female

DRUGS (1)
  1. PAXIL [Suspect]
     Indication: DEPRESSION
     Dosage: 40MG PER DAY
     Route: 048
     Dates: start: 20040101, end: 20090101

REACTIONS (8)
  - ANXIETY [None]
  - CRYING [None]
  - DIARRHOEA [None]
  - DISABILITY [None]
  - DIZZINESS [None]
  - IMPAIRED DRIVING ABILITY [None]
  - PARAESTHESIA [None]
  - WITHDRAWAL SYNDROME [None]
